FAERS Safety Report 17780455 (Version 1)
Quarter: 2020Q2

REPORT INFORMATION
  Report Type: Spontaneous
  Country: DE (occurrence: DE)
  Receive Date: 20200513
  Receipt Date: 20200513
  Transmission Date: 20200714
  Serious: Yes (Other)
  Sender: FDA-Public Use
  Company Number: DE-PFIZER INC-2020189734

PATIENT
  Sex: Female

DRUGS (17)
  1. ATORVASTATIN CALCIUM. [Suspect]
     Active Substance: ATORVASTATIN CALCIUM
     Dosage: 40 MG, 1X/DAY
     Dates: start: 20200411
  2. LIXIANA [Interacting]
     Active Substance: EDOXABAN TOSYLATE
     Dosage: 60 MG, 1X/DAY
     Dates: start: 20200413
  3. CANDESARTAN. [Interacting]
     Active Substance: CANDESARTAN
     Dosage: 8 MG, DAILY (DAILY AT 5 PM)
     Route: 065
     Dates: start: 20200407
  4. CANDESARTAN. [Interacting]
     Active Substance: CANDESARTAN
     Dosage: 0.5 DF, DAILY (HALF DOSAGE OF 8MG, DAILY AT 9 AM)
     Dates: start: 20200407
  5. CANDESARTAN. [Interacting]
     Active Substance: CANDESARTAN
     Dosage: 4 MG, 1X/DAY
  6. NIFEDIPIN [Interacting]
     Active Substance: NIFEDIPINE
     Dosage: 20 MG/ML, SINGLE
     Route: 065
     Dates: start: 20200311
  7. MULTAQ [Interacting]
     Active Substance: DRONEDARONE
     Dosage: 400 MG, 1X/DAY
     Dates: start: 20200411
  8. SORMODREN [Interacting]
     Active Substance: BORNAPRINE HYDROCHLORIDE
     Dosage: 1 DF, DAILY (0.5 DF, TWICE A DAY (4 MG))
     Dates: start: 20200413
  9. LIXIANA [Interacting]
     Active Substance: EDOXABAN TOSYLATE
     Dosage: 60 MG, 1X/DAY
     Dates: start: 20200411
  10. NIFEDIPIN [Interacting]
     Active Substance: NIFEDIPINE
     Dosage: 20 MG/ML, SINGLE
     Route: 065
     Dates: start: 20200314
  11. NIFEDIPIN [Interacting]
     Active Substance: NIFEDIPINE
     Dosage: 20 MG/ML, SINGLE
     Dates: start: 20200411
  12. NIFEDIPIN [Interacting]
     Active Substance: NIFEDIPINE
     Dosage: 20 MG/ML, SINGLE
     Dates: start: 20200413
  13. MULTAQ [Interacting]
     Active Substance: DRONEDARONE
     Dosage: 400 MG, 1X/DAY
     Dates: start: 20200413
  14. SORMODREN [Interacting]
     Active Substance: BORNAPRINE HYDROCHLORIDE
     Dosage: 1 DF, DAILY (0.5 DF, TWICE A DAY (4 MG))
     Dates: start: 20200411
  15. BISOPROLOL [Interacting]
     Active Substance: BISOPROLOL
     Dosage: 2.5 MG
     Route: 065
  16. ATORVASTATIN CALCIUM. [Interacting]
     Active Substance: ATORVASTATIN CALCIUM
     Dosage: 40 MG, 1X/DAY
     Dates: start: 20200413
  17. BISOPROLOL [Interacting]
     Active Substance: BISOPROLOL
     Dosage: 1 DF, DAILY (0.5 DF, BIDAILY (2.5 MG))
     Dates: start: 20200413

REACTIONS (2)
  - Drug interaction [Unknown]
  - Blood pressure systolic increased [Unknown]

NARRATIVE: CASE EVENT DATE: 20200413
